FAERS Safety Report 8217532-0 (Version None)
Quarter: 2012Q1

REPORT INFORMATION
  Report Type: 
  Country: None (occurrence: None)
  Receive Date: 20120305
  Receipt Date: 20111207
  Transmission Date: 20120608
  Serious: Yes (Other)
  Sender: FDA-Public Use
  Company Number: 1000026130

PATIENT
  Age: 78 Year
  Sex: Female

DRUGS (7)
  1. MIRAPEX (PRANIPEXOLE DIHYDROCHLORIDE) (PRAMIPEXOLE DIHYDROCHLORIDE) [Concomitant]
  2. DIOVAN [Concomitant]
  3. XOPENEX (LEVOSALBUTAMOL HYDROCHLORIDE) (LEVOSALBUTAMOL HYDROCHLORIDE) [Concomitant]
  4. SPIRIVA (TIOTROPIUM BROMIDE) (TIOTROPIUM BROMIDE) [Concomitant]
  5. SYNTHROID (LEVOTHYROXINE SODIUM) 9LEVOTHYROXINE SODIUM) [Concomitant]
  6. DALIRESP [Suspect]
     Indication: CHRONIC OBSTRUCTIVE PULMONARY DISEASE
     Dosage: 500 MCG (500 MCG, 1 IN 1 D), ORAL
     Route: 048
     Dates: start: 20111010, end: 20111024
  7. COMBIVENT (COMBIVENT) (COMBIVENT) [Concomitant]

REACTIONS (1)
  - SUICIDAL IDEATION [None]
